FAERS Safety Report 6749995-1 (Version None)
Quarter: 2010Q2

REPORT INFORMATION
  Report Type: 
  Country: None (occurrence: None)
  Receive Date: 20100601
  Receipt Date: 20100525
  Transmission Date: 20101027
  Serious: Yes (Hospitalization)
  Sender: FDA-Public Use
  Company Number: FR-B.I. PHARMACEUTICALS,INC./RIDGEFIELD-2010-FF-00437FF

PATIENT
  Sex: Female

DRUGS (1)
  1. MICARDIS HCT [Suspect]
     Indication: HYPERTENSION
     Dosage: 80 MG/12.5 MG
     Route: 048
     Dates: end: 20091111

REACTIONS (6)
  - DEHYDRATION [None]
  - FALL [None]
  - HUMERUS FRACTURE [None]
  - MALAISE [None]
  - ORTHOSTATIC HYPOTENSION [None]
  - RENAL FAILURE ACUTE [None]
